FAERS Safety Report 8509456-6 (Version None)
Quarter: 2012Q3

REPORT INFORMATION
  Report Type: 
  Country: None (occurrence: None)
  Receive Date: 20120703
  Receipt Date: 20120618
  Transmission Date: 20120928
  Serious: Yes (Other)
  Sender: FDA-Public Use
  Company Number: 2012MA007628

PATIENT
  Age: 23 Year
  Sex: Male

DRUGS (2)
  1. FLUOXETINE HYDROCHLORIDE [Suspect]
     Indication: DEPRESSION
     Dosage: 10 MG;QD;PO
     Route: 048
  2. LORAZEPAM [Suspect]
     Indication: DEPRESSION
     Dosage: 1.5 MG;QD;PO
     Route: 048

REACTIONS (3)
  - ACCOMMODATION DISORDER [None]
  - VISUAL IMPAIRMENT [None]
  - PUPILLARY REFLEX IMPAIRED [None]
